FAERS Safety Report 8975086 (Version 1)
Quarter: 2012Q4

REPORT INFORMATION
  Report Type: 
  Country: BR (occurrence: BR)
  Receive Date: 20121219
  Receipt Date: 20121219
  Transmission Date: 20130627
  Serious: Yes (Hospitalization)
  Sender: FDA-Public Use
  Company Number: PHHY2012BR115677

PATIENT
  Age: 21 Year
  Sex: Male
  Weight: 59 kg

DRUGS (8)
  1. CERTICAN [Suspect]
     Indication: RENAL TRANSPLANT
     Dosage: 0.5 mg 4 tablets orally (2 tablets in the morning and 2 tablets in the night)
     Route: 048
     Dates: start: 201206
  2. CERTICAN [Suspect]
     Dosage: 1 mg, BID
     Route: 048
     Dates: start: 201206
  3. CERTICAN [Suspect]
     Dosage: 4 mg, QD
     Route: 048
  4. TACROLIMUS [Concomitant]
     Indication: RENAL TRANSPLANT
  5. SODIUM BICARBONATE [Concomitant]
     Indication: MINERAL SUPPLEMENTATION
  6. CALCIUM CARBONATE [Concomitant]
     Indication: MINERAL SUPPLEMENTATION
  7. POTASSIUM [Concomitant]
     Indication: MINERAL SUPPLEMENTATION
  8. PREDNISONE [Concomitant]
     Indication: RENAL TRANSPLANT

REACTIONS (4)
  - Diplegia [Recovering/Resolving]
  - Vomiting [Recovering/Resolving]
  - Abdominal pain upper [Recovering/Resolving]
  - Immunosuppressant drug level decreased [Recovering/Resolving]
